FAERS Safety Report 8505482-1 (Version None)
Quarter: 2012Q3

REPORT INFORMATION
  Report Type: 
  Country: None (occurrence: None)
  Receive Date: 20120712
  Receipt Date: 20120706
  Transmission Date: 20120928
  Serious: No
  Sender: FDA-Public Use
  Company Number: US-B.I. PHARMACEUTICALS,INC./RIDGEFIELD-2011-BP-15064BP

PATIENT
  Sex: Male

DRUGS (6)
  1. PRADAXA [Suspect]
     Indication: CARDIAC ABLATION
     Dosage: 300 MG
     Route: 048
     Dates: start: 20111001
  2. ASPIRIN [Concomitant]
  3. PRADAXA [Suspect]
     Indication: ATRIAL FIBRILLATION
     Dosage: 300 MG
     Route: 048
     Dates: start: 20110401, end: 20110608
  4. CELEBREX [Concomitant]
     Indication: ARTHRITIS
     Dates: start: 20120616
  5. DIOVAN [Concomitant]
     Indication: PROPHYLAXIS
     Route: 048
     Dates: start: 20090101
  6. ASPIRIN [Concomitant]
     Indication: CEREBROVASCULAR ACCIDENT PROPHYLAXIS
     Dosage: 81 MG
     Route: 048
     Dates: start: 20091101

REACTIONS (4)
  - ABDOMINAL PAIN LOWER [None]
  - BACK PAIN [None]
  - COUGH [None]
  - CHEST PAIN [None]
